FAERS Safety Report 9309396 (Version 1)
Quarter: 2013Q2

REPORT INFORMATION
  Report Type: Spontaneous
  Country: US (occurrence: US)
  Receive Date: 20130525
  Receipt Date: 20130525
  Transmission Date: 20140414
  Serious: No
  Sender: FDA-Public Use
  Company Number: US-BRISTOL-MYERS SQUIBB COMPANY-18583799

PATIENT
  Age: 45 Year
  Sex: Female

DRUGS (4)
  1. BYDUREON 2MG VIAL + SYRINGE [Suspect]
     Indication: TYPE 2 DIABETES MELLITUS
     Route: 058
     Dates: start: 201212
  2. DRUG USED IN DIABETES [Concomitant]
     Route: 048
  3. OTHER ANTIHYPERTENSIVES [Concomitant]
     Route: 048
  4. THYROID HORMONES [Concomitant]
     Indication: HYPOTHYROIDISM
     Route: 048

REACTIONS (1)
  - Weight decreased [Not Recovered/Not Resolved]
